FAERS Safety Report 13256586 (Version 1)
Quarter: 2017Q1

REPORT INFORMATION
  Report Type: Spontaneous
  Country: US (occurrence: US)
  Receive Date: 20170220
  Receipt Date: 20170220
  Transmission Date: 20170428
  Serious: Yes (Life-Threatening, Hospitalization, Disabling, Other)
  Sender: FDA-Public Use
  Company Number: None

PATIENT
  Age: 44 Year
  Sex: Female
  Weight: 99 kg

DRUGS (2)
  1. INVEGA [Suspect]
     Active Substance: PALIPERIDONE
     Indication: BIPOLAR DISORDER
     Route: 030
     Dates: start: 20161001, end: 20161014
  2. SAPHRIS [Concomitant]
     Active Substance: ASENAPINE MALEATE

REACTIONS (4)
  - Foetal death [None]
  - Dyspnoea [None]
  - Exposure during pregnancy [None]
  - Tinnitus [None]

NARRATIVE: CASE EVENT DATE: 20161001
